FAERS Safety Report 9502670 (Version 3)
Quarter: 2013Q4

REPORT INFORMATION
  Report Type: Spontaneous
  Country: AU (occurrence: AU)
  Receive Date: 20130906
  Receipt Date: 20131010
  Transmission Date: 20140711
  Serious: Yes (Other)
  Sender: FDA-Public Use
  Company Number: AU-UCBSA-096342

PATIENT
  Age: 15 Year
  Sex: Male

DRUGS (4)
  1. KEPPRA [Suspect]
     Indication: CONVULSION
     Dosage: 100MG/ML
     Route: 048
     Dates: start: 201307, end: 2013
  2. KEPPRA [Interacting]
     Indication: CONVULSION
     Dosage: 100MG/ML
     Route: 048
     Dates: start: 201308
  3. FISH OIL [Interacting]
     Dosage: HALF A TEASPOON DAILY
     Route: 048
     Dates: start: 201308
  4. BACLOFEN [Concomitant]
     Indication: MUSCLE SPASMS

REACTIONS (2)
  - Convulsion [Recovered/Resolved]
  - Drug interaction [Recovered/Resolved]
